FAERS Safety Report 8564266-9 (Version None)
Quarter: 2012Q3

REPORT INFORMATION
  Report Type: 
  Country: None (occurrence: None)
  Receive Date: 20120727
  Receipt Date: 20120727
  Transmission Date: 20120928
  Serious: Yes (Hospitalization)
  Sender: FDA-Public Use
  Company Number: None

PATIENT
  Age: 48 Year
  Sex: Female
  Weight: 112 kg

DRUGS (10)
  1. LEVETIRACETAM [Concomitant]
  2. IBUPROFEN [Concomitant]
  3. SYNTHROID [Concomitant]
  4. LORAZEPAM [Concomitant]
  5. DILTIAZEM [Concomitant]
  6. TRIAMTERENE AND HYDROCHLOROTHIAZIDE [Concomitant]
  7. PROTONIX [Concomitant]
  8. METAMUCIL-2 [Concomitant]
  9. EVEROLIMUS [Suspect]
     Indication: THYROID CANCER
     Dosage: 10 MG, QD
     Dates: start: 20120502, end: 20120724
  10. OXCARBAZEPINE [Concomitant]

REACTIONS (1)
  - ILL-DEFINED DISORDER [None]
